FAERS Safety Report 25964221 (Version 1)
Quarter: 2025Q4

REPORT INFORMATION
  Report Type: Spontaneous
  Country: US (occurrence: None)
  Receive Date: 20251027
  Receipt Date: 20251027
  Transmission Date: 20260117
  Serious: No
  Sender: FDA-CTU
  Company Number: None

PATIENT
  Sex: Female

DRUGS (9)
  1. GAMUNEX-C [Suspect]
     Active Substance: HUMAN IMMUNOGLOBULIN G
     Indication: Stiff person syndrome
     Dosage: OTHER FREQUENCY : SEE EVENT;?
     Route: 042
     Dates: start: 20190910
  2. HEPARIN L/L FLUSH SYR (5ML) [Concomitant]
  3. LACTATED RINGERS SOLUTION [Concomitant]
     Active Substance: CALCIUM CHLORIDE\POTASSIUM CHLORIDE\SODIUM CHLORIDE\SODIUM LACTATE
  4. BACTERIOSTATIC WATER MDV [Concomitant]
  5. SOD CHLOR POS STERILE F (10ML) [Concomitant]
  6. GAMUNEX-C [Concomitant]
     Active Substance: HUMAN IMMUNOGLOBULIN G
  7. NORMAL SALINE FLUSH (5ML) [Concomitant]
  8. DIPHENHYDRAMINE [Concomitant]
     Active Substance: DIPHENHYDRAMINE
  9. METHYLPRED SOD SUCC SDV [Concomitant]

REACTIONS (1)
  - Device defective [None]
